FAERS Safety Report 18252953 (Version 2)
Quarter: 2020Q4

REPORT INFORMATION
  Report Type: Spontaneous
  Country: US (occurrence: US)
  Receive Date: 20200910
  Receipt Date: 20201002
  Transmission Date: 20210113
  Serious: No
  Sender: FDA-Public Use
  Company Number: US-TEVA-2020-US-1826117

PATIENT
  Sex: Male

DRUGS (7)
  1. ENALAPRIL MALEATE. [Concomitant]
     Active Substance: ENALAPRIL MALEATE
  2. LYRICA [Concomitant]
     Active Substance: PREGABALIN
  3. INVOKANA [Concomitant]
     Active Substance: CANAGLIFLOZIN
  4. EFFEXOR [Concomitant]
     Active Substance: VENLAFAXINE HYDROCHLORIDE
  5. METFORMIN HCL [Concomitant]
     Active Substance: METFORMIN HYDROCHLORIDE
  6. PRAVASTATIN SODIUM. [Concomitant]
     Active Substance: PRAVASTATIN SODIUM
  7. SYNRIBO [Suspect]
     Active Substance: OMACETAXINE MEPESUCCINATE
     Indication: CHRONIC MYELOID LEUKAEMIA
     Dosage: 3.5 MG VIAL , DOSAGE: 2.5MG/0.71ML , BID X 7DAYS/28 DAY CYCLE
     Route: 065
     Dates: start: 20200829

REACTIONS (7)
  - Blood count abnormal [Unknown]
  - Incoherent [Unknown]
  - Hypotension [Unknown]
  - Arthralgia [Unknown]
  - Back pain [Unknown]
  - Dizziness [Unknown]
  - Blood glucose increased [Unknown]
